FAERS Safety Report 15300951 (Version 1)
Quarter: 2018Q3

REPORT INFORMATION
  Report Type: Spontaneous
  Country: US (occurrence: US)
  Receive Date: 20180809
  Receipt Date: 20180809
  Transmission Date: 20181010
  Serious: Yes (Other)
  Sender: FDA-Public Use
  Company Number: None

PATIENT
  Age: 47 Year
  Sex: Female
  Weight: 85.5 kg

DRUGS (6)
  1. LISINOPRIL. [Concomitant]
     Active Substance: LISINOPRIL
  2. OPCON?A [Suspect]
     Active Substance: NAPHAZOLINE HYDROCHLORIDE\PHENIRAMINE MALEATE
     Indication: EYE PRURITUS
     Dosage: ?          OTHER STRENGTH:UNKNOWN;QUANTITY:1 DROPS;?
     Route: 047
     Dates: start: 20180808, end: 20180808
  3. LO LOESTRIN FE [Concomitant]
     Active Substance: ETHINYL ESTRADIOL\NORETHINDRONE ACETATE
  4. LEVOTHYROXIN [Concomitant]
     Active Substance: LEVOTHYROXINE
  5. OPCON?A [Suspect]
     Active Substance: NAPHAZOLINE HYDROCHLORIDE\PHENIRAMINE MALEATE
     Indication: OCULAR HYPERAEMIA
     Dosage: ?          OTHER STRENGTH:UNKNOWN;QUANTITY:1 DROPS;?
     Route: 047
     Dates: start: 20180808, end: 20180808
  6. OPCON?A [Suspect]
     Active Substance: NAPHAZOLINE HYDROCHLORIDE\PHENIRAMINE MALEATE
     Indication: EYE ALLERGY
     Dosage: ?          OTHER STRENGTH:UNKNOWN;QUANTITY:1 DROPS;?
     Route: 047
     Dates: start: 20180808, end: 20180808

REACTIONS (5)
  - Eye pain [None]
  - Mydriasis [None]
  - Visual impairment [None]
  - Vision blurred [None]
  - Cerebrovascular accident [None]

NARRATIVE: CASE EVENT DATE: 20180808
